FAERS Safety Report 5347250-8 (Version None)
Quarter: 2007Q2

REPORT INFORMATION
  Report Type: 
  Country: None (occurrence: None)
  Receive Date: 20070606
  Receipt Date: 20070528
  Transmission Date: 20071010
  Serious: Yes (Other)
  Sender: FDA-Public Use
  Company Number: PHBS2006JP11774

PATIENT
  Age: 40 Year
  Sex: Male

DRUGS (5)
  1. METHYLPREDNISOLONE 16MG TAB [Concomitant]
     Indication: RENAL TRANSPLANT
     Route: 065
  2. MYCOPHENOLATE MOFETIL [Suspect]
     Indication: RENAL TRANSPLANT
     Route: 065
  3. TACROLIMUS [Concomitant]
     Indication: RENAL TRANSPLANT
     Route: 065
  4. SIMULECT [Suspect]
     Indication: RENAL TRANSPLANT
     Route: 042
  5. DILTIAZEM (NGX) [Suspect]

REACTIONS (3)
  - HEPATOCELLULAR DAMAGE [None]
  - HEPATOTOXICITY [None]
  - LIVER DISORDER [None]
